FAERS Safety Report 10590471 (Version 2)
Quarter: 2014Q4

REPORT INFORMATION
  Report Type: Spontaneous
  Country: CA (occurrence: CA)
  Receive Date: 20141118
  Receipt Date: 20141201
  Transmission Date: 20150529
  Serious: Yes (Other)
  Sender: FDA-Public Use
  Company Number: CA-PFIZER INC-2014315256

PATIENT
  Age: 59 Year
  Sex: Female

DRUGS (8)
  1. CELEBREX [Suspect]
     Active Substance: CELECOXIB
     Indication: RHEUMATOID ARTHRITIS
     Dosage: 200 MG, 2X/DAY
     Dates: start: 2014
  2. PREDNISONE. [Suspect]
     Active Substance: PREDNISONE
     Indication: RHEUMATOID ARTHRITIS
     Dosage: 14 MG, 1X/DAY
     Dates: start: 2012
  3. CELEBREX [Suspect]
     Active Substance: CELECOXIB
     Indication: RHEUMATOID ARTHRITIS
     Dosage: 200 MG, 2X/DAY
     Dates: start: 2012, end: 2014
  4. PLAQUENIL [Suspect]
     Active Substance: HYDROXYCHLOROQUINE SULFATE
     Indication: RHEUMATOID ARTHRITIS
     Dosage: UNK UNK, 2X/DAY
     Dates: start: 2012, end: 201406
  5. ACTEMRA [Suspect]
     Active Substance: TOCILIZUMAB
     Indication: RHEUMATOID ARTHRITIS
     Dosage: 1 DF, 1X/MONTH
     Dates: start: 2013
  6. DILAUDID [Concomitant]
     Active Substance: HYDROMORPHONE HYDROCHLORIDE
     Indication: RHEUMATOID ARTHRITIS
     Dosage: 4 MG, 3X/DAY AS NEEDED
     Dates: start: 2009
  7. LYRICA [Concomitant]
     Active Substance: PREGABALIN
     Indication: FIBROMYALGIA
     Dosage: 2 CAPSULES IN AM, 1 IN PM, DAILY
     Route: 048
     Dates: start: 2010
  8. HYDROMORPH CONTIN [Concomitant]
     Active Substance: HYDROMORPHONE
     Indication: RHEUMATOID ARTHRITIS
     Dosage: 18 MG, 1 CAPSULE EVERY 8 HOURS

REACTIONS (8)
  - Peripheral swelling [Not Recovered/Not Resolved]
  - Vomiting [Recovered/Resolved]
  - Scar [Not Recovered/Not Resolved]
  - Dehydration [Unknown]
  - Condition aggravated [Not Recovered/Not Resolved]
  - Immobile [Unknown]
  - Rheumatoid arthritis [Not Recovered/Not Resolved]
  - Blister [Recovered/Resolved with Sequelae]

NARRATIVE: CASE EVENT DATE: 2012
